FAERS Safety Report 5640474-1 (Version None)
Quarter: 2008Q1

REPORT INFORMATION
  Report Type: 
  Country: None (occurrence: None)
  Receive Date: 20080225
  Receipt Date: 20080215
  Transmission Date: 20080703
  Serious: Yes (Hospitalization, Other)
  Sender: FDA-Public Use
  Company Number: 100#08#2008-00700

PATIENT
  Age: 63 Year
  Sex: Male

DRUGS (2)
  1. METHYLPREDNISOLONE [Suspect]
     Indication: INFLAMMATION
     Dosage: 1 G INTRAVENOUS
     Route: 042
  2. METHYLPREDNISOLONE [Suspect]
     Indication: SPINAL CORD DISORDER
     Dosage: 1 G INTRAVENOUS
     Route: 042

REACTIONS (2)
  - CONDITION AGGRAVATED [None]
  - MYELOPATHY [None]
